FAERS Safety Report 23947335 (Version 1)
Quarter: 2024Q2

REPORT INFORMATION
  Report Type: Spontaneous
  Country: CA (occurrence: CA)
  Receive Date: 20240606
  Receipt Date: 20240606
  Transmission Date: 20240716
  Serious: Yes (Hospitalization)
  Sender: FDA-Public Use
  Company Number: CA-TEVA-VS-3204101

PATIENT
  Age: 75 Year
  Sex: Female

DRUGS (1)
  1. METHOTREXATE [Suspect]
     Active Substance: METHOTREXATE
     Indication: Product used for unknown indication
     Dosage: INJECTION, USP, DOSAGE FORM: SOLUTION INTRA- ARTERIAL
     Route: 065

REACTIONS (2)
  - Lip ulceration [Unknown]
  - Neutropenia [Unknown]
